FAERS Safety Report 8552012-4 (Version None)
Quarter: 2012Q3

REPORT INFORMATION
  Report Type: 
  Country: None (occurrence: None)
  Receive Date: 20120730
  Receipt Date: 20120719
  Transmission Date: 20120928
  Serious: Yes (Life-Threatening, Hospitalization)
  Sender: FDA-Public Use
  Company Number: FR-BRISTOL-MYERS SQUIBB COMPANY-16719197

PATIENT
  Age: 66 Year
  Sex: Male
  Weight: 75 kg

DRUGS (5)
  1. CILENGITIDE [Suspect]
     Indication: NON-SMALL CELL LUNG CANCER
     Dosage: NO OF INF 87 LAST INF 13JUN12
     Route: 042
     Dates: start: 20110315
  2. GEMCITABINE [Suspect]
     Indication: NON-SMALL CELL LUNG CANCER
     Dosage: DAY1,DAY 8 OF EACH 3WK CYCLE NO OF INF 12
     Route: 042
     Dates: start: 20110315, end: 20110712
  3. CISPLATIN [Suspect]
     Indication: NON-SMALL CELL LUNG CANCER
     Dosage: NO OF INF:6 LAST INF DT 12JUL11
     Route: 042
     Dates: start: 20110315, end: 20110712
  4. CETUXIMAB [Suspect]
     Indication: NON-SMALL CELL LUNG CANCER
     Dosage: LAST INF 13JUN12 NO OF INF 66
     Route: 042
     Dates: start: 20110315
  5. PLAVIX [Concomitant]
     Route: 048
     Dates: start: 20090101

REACTIONS (1)
  - PULMONARY EMBOLISM [None]
